FAERS Safety Report 6693640-0 (Version None)
Quarter: 2010Q2

REPORT INFORMATION
  Report Type: 
  Country: None (occurrence: None)
  Receive Date: 20100423
  Receipt Date: 20100419
  Transmission Date: 20101027
  Serious: Yes (Death, Other)
  Sender: FDA-Public Use
  Company Number: US-CELGENEUS-163-21880-10030603

PATIENT
  Sex: Female

DRUGS (8)
  1. REVLIMID [Suspect]
     Route: 048
     Dates: start: 20100216, end: 20100220
  2. HYDROXYUREA [Suspect]
     Indication: DRUG USE FOR UNKNOWN INDICATION
     Route: 065
     Dates: start: 20100205, end: 20100207
  3. HYDROXYUREA [Suspect]
     Route: 065
     Dates: start: 20100208, end: 20100211
  4. HYDROXYUREA [Suspect]
     Route: 065
     Dates: start: 20100212, end: 20100215
  5. HYDROXYUREA [Suspect]
     Route: 065
     Dates: start: 20100216
  6. HYDROXYUREA [Suspect]
     Route: 065
     Dates: start: 20100217
  7. HYDROXYUREA [Suspect]
     Route: 065
     Dates: start: 20100218
  8. HYDROXYUREA [Suspect]
     Route: 065
     Dates: start: 20100220

REACTIONS (4)
  - NEUTROPENIA [None]
  - PNEUMONIA INFLUENZAL [None]
  - RESPIRATORY FAILURE [None]
  - WHITE BLOOD CELL COUNT DECREASED [None]
